FAERS Safety Report 7918885-0 (Version None)
Quarter: 2011Q4

REPORT INFORMATION
  Report Type: 
  Country: None (occurrence: None)
  Receive Date: 20111116
  Receipt Date: 20111109
  Transmission Date: 20120403
  Serious: Yes (Hospitalization)
  Sender: FDA-Public Use
  Company Number: PHHO2011FR018830

PATIENT
  Sex: Male

DRUGS (12)
  1. MORPHINE SULFATE [Concomitant]
  2. GAVISCON [Concomitant]
  3. EVEROLIMUS [Suspect]
     Indication: NON-SMALL CELL LUNG CANCER
     Dosage: 5 MG, DAILY
     Route: 048
     Dates: start: 20111004
  4. RADIOTHERAPY [Suspect]
     Indication: NON-SMALL CELL LUNG CANCER
     Dosage: 2 GR, DAILY
     Dates: start: 20111013, end: 20111103
  5. LOREMIX [Concomitant]
  6. MORPHINE SULFATE [Concomitant]
  7. PROPRANOLOL [Concomitant]
  8. OMEPRAZOLE [Concomitant]
  9. LANSOYL [Concomitant]
  10. ASPIRIN [Concomitant]
  11. VESICARE [Concomitant]
  12. MOVIPREP [Concomitant]

REACTIONS (1)
  - OESOPHAGITIS [None]
